FAERS Safety Report 5865199-9 (Version None)
Quarter: 2008Q3

REPORT INFORMATION
  Report Type: 
  Country: None (occurrence: None)
  Receive Date: 20080829
  Receipt Date: 20080822
  Transmission Date: 20090109
  Serious: Yes (Life-Threatening, Disabling, Congenital Anomaly)
  Sender: FDA-Public Use
  Company Number: B0525102A

PATIENT
  Age: 64 Year
  Sex: Male
  Weight: 154 kg

DRUGS (5)
  1. AVANDIA [Suspect]
     Indication: TYPE 2 DIABETES MELLITUS
     Dosage: 4MG TWICE PER DAY
     Route: 048
     Dates: start: 20010812, end: 20070412
  2. METFORMIN HCL [Concomitant]
     Dosage: 500MG TWICE PER DAY
     Route: 048
     Dates: start: 20010801
  3. GLICLAZIDE [Concomitant]
     Dosage: 160MG TWICE PER DAY
     Route: 048
     Dates: start: 20020701
  4. LISINOPRIL [Concomitant]
     Dosage: 2.5G PER DAY
     Route: 048
     Dates: start: 20020301
  5. ATORVASTATIN [Concomitant]
     Route: 065
     Dates: start: 20020701

REACTIONS (2)
  - CONGESTIVE CARDIOMYOPATHY [None]
  - MITRAL VALVE INCOMPETENCE [None]
